FAERS Safety Report 23520981 (Version 1)
Quarter: 2024Q1

REPORT INFORMATION
  Report Type: 
  Country: None (occurrence: None)
  Receive Date: 20240214
  Receipt Date: 20240214
  Transmission Date: 20240410
  Serious: No
  Sender: FDA-Public Use
  Company Number: DE-ROCHE-2820461

PATIENT

DRUGS (4)
  1. OCREVUS [Suspect]
     Active Substance: OCRELIZUMAB
     Dates: start: 20200929, end: 20230119
  2. OCREVUS [Suspect]
     Active Substance: OCRELIZUMAB
     Dates: start: 20210422
  3. LEVOTHYROXINE SODIUM [Concomitant]
     Active Substance: LEVOTHYROXINE SODIUM
  4. TAPENTADOL [Concomitant]
     Active Substance: TAPENTADOL

REACTIONS (11)
  - Oropharyngeal pain [None]
  - Nasal congestion [None]
  - Nasopharyngitis [None]
  - COVID-19 [None]
  - Throat irritation [None]
  - Intervertebral disc protrusion [None]
  - Facet joint syndrome [None]
  - Blood lactate dehydrogenase increased [None]
  - Fatigue [None]
  - Headache [None]
  - Multiple sclerosis [None]

NARRATIVE: CASE EVENT DATE: 20210101
